FAERS Safety Report 4896992-7 (Version None)
Quarter: 2006Q1

REPORT INFORMATION
  Report Type: 
  Country: None (occurrence: None)
  Receive Date: 20060127
  Receipt Date: 20060113
  Transmission Date: 20060701
  Serious: Yes (Hospitalization)
  Sender: FDA-Public Use
  Company Number: 200610144GDS

PATIENT
  Age: 71 Year
  Sex: Female

DRUGS (4)
  1. ALEVE [Suspect]
     Dosage: ORAL
     Route: 048
     Dates: end: 20051106
  2. ASPIRIN [Suspect]
     Dosage: ORAL
     Route: 048
     Dates: end: 20051106
  3. MEFENAMIC ACID [Suspect]
     Dosage: ORAL
     Route: 048
     Dates: end: 20051106
  4. CLORAZEPATE DIPOTASSIUM [Suspect]
     Dosage: ORAL
     Route: 048
     Dates: end: 20051106

REACTIONS (8)
  - ANAEMIA [None]
  - DRUG ABUSER [None]
  - ENTEROCOLITIS HAEMORRHAGIC [None]
  - GASTRIC ULCER [None]
  - GASTRITIS HAEMORRHAGIC [None]
  - LARGE INTESTINAL ULCER [None]
  - SOMNOLENCE [None]
  - TACHYCARDIA [None]
